FAERS Safety Report 9856665 (Version 2)
Quarter: 2014Q1

REPORT INFORMATION
  Report Type: Report from Study
  Country: GB (occurrence: GB)
  Receive Date: 20140130
  Receipt Date: 20140130
  Transmission Date: 20141002
  Serious: Yes (Hospitalization)
  Sender: FDA-Public Use
  Company Number: GB-CELGENEUS-167-20785-12120711

PATIENT
  Age: 66 Year
  Sex: Male

DRUGS (4)
  1. THALIDOMIDE [Suspect]
     Indication: PLASMA CELL MYELOMA
     Dosage: 50 MILLIGRAM
     Route: 048
     Dates: start: 20121117
  2. CYCLOPHOSPHAMIDE [Suspect]
     Indication: PLASMA CELL MYELOMA
     Dosage: 500 MILLIGRAM
     Route: 048
     Dates: start: 20121117
  3. DEXAMETHASONE [Suspect]
     Indication: PLASMA CELL MYELOMA
     Dosage: 40 MILLIGRAM
     Route: 048
     Dates: start: 20121117
  4. ONDANSETRON [Suspect]
     Indication: PRODUCT USED FOR UNKNOWN INDICATION
     Route: 065

REACTIONS (2)
  - Wheezing [Recovered/Resolved]
  - Constipation [Recovered/Resolved]
